FAERS Safety Report 8055773 (Version 5)
Quarter: 2013Q1

REPORT INFORMATION
  Report Type: Report from Study
  Country: DE (occurrence: DE)
  Receive Date: 20110726
  Receipt Date: 20130308
  Transmission Date: 20140127
  Serious: Yes (Hospitalization, Other)
  Sender: FDA-Public Use
  Company Number: PHHO2011DE12597

PATIENT
  Age: 65 Year
  Sex: Male

DRUGS (10)
  1. AMN107 [Suspect]
     Indication: CHRONIC MYELOID LEUKAEMIA
     Dosage: 600 MG, BID
     Route: 048
     Dates: start: 20100916, end: 20120202
  2. ANTIHYPERTENSIVES [Concomitant]
  3. ATOSIL [Concomitant]
     Dosage: 2 DRP PER DAY
  4. STILNOX [Concomitant]
     Dosage: 0.25
  5. STRODIVAL [Concomitant]
     Dosage: 2-0-1
  6. BONDIOL [Concomitant]
     Dosage: 1 UG,PER DAY
  7. KINZALKOMB [Concomitant]
     Dosage: 20/6, 25 MG/D
  8. GLYCERYLNITRAT [Concomitant]
  9. KALINOR                                 /TUR/ [Concomitant]
     Dosage: UNK
  10. BELOC-ZOC MITE [Concomitant]
     Dosage: 0-0-0.5

REACTIONS (2)
  - Coronary artery stenosis [Recovered/Resolved]
  - Concomitant disease progression [Recovered/Resolved]
